FAERS Safety Report 10078247 (Version 1)
Quarter: 2014Q2

REPORT INFORMATION
  Report Type: Spontaneous
  Country: US (occurrence: US)
  Receive Date: 20140415
  Receipt Date: 20140415
  Transmission Date: 20141212
  Serious: Yes (Other)
  Sender: FDA-Public Use
  Company Number: US-AMGEN-USASP2014026292

PATIENT
  Sex: 0

DRUGS (4)
  1. XGEVA [Suspect]
     Indication: METASTASES TO BONE
     Route: 065
  2. ABRAXANE                           /01116001/ [Concomitant]
  3. AVASTIN                            /00848101/ [Concomitant]
  4. FASLODEX                           /01503001/ [Concomitant]

REACTIONS (3)
  - Metastases to abdominal wall [Not Recovered/Not Resolved]
  - Metastases to bone [Unknown]
  - Feeling abnormal [Unknown]
